FAERS Safety Report 10519045 (Version 2)
Quarter: 2014Q4

REPORT INFORMATION
  Report Type: Spontaneous
  Country: US (occurrence: US)
  Receive Date: 20141015
  Receipt Date: 20141217
  Transmission Date: 20150528
  Serious: Yes (Hospitalization, Other)
  Sender: FDA-Public Use
  Company Number: US-JNJFOC-20141006923

PATIENT
  Age: 55 Year
  Sex: Female

DRUGS (4)
  1. REMICADE [Suspect]
     Active Substance: INFLIXIMAB
     Indication: RHEUMATOID ARTHRITIS
     Route: 042
     Dates: start: 20110828, end: 20111008
  2. REMICADE [Suspect]
     Active Substance: INFLIXIMAB
     Indication: RHEUMATOID ARTHRITIS
     Route: 042
     Dates: end: 20111018
  3. INSULIN [Concomitant]
     Active Substance: INSULIN NOS
     Indication: TYPE 2 DIABETES MELLITUS
     Route: 065
  4. METHOTREXATE [Suspect]
     Active Substance: METHOTREXATE
     Indication: PRODUCT USED FOR UNKNOWN INDICATION
     Route: 065

REACTIONS (16)
  - Synovitis [Recovering/Resolving]
  - Histoplasmosis [Unknown]
  - Chills [Unknown]
  - Haemorrhoids [Unknown]
  - Neoplasm malignant [Unknown]
  - Arthralgia [Unknown]
  - Herpes zoster [Unknown]
  - Gastrointestinal erosion [Unknown]
  - Arthralgia [Unknown]
  - Lung infiltration [Unknown]
  - Pleural effusion [Unknown]
  - Appendicitis [Unknown]
  - Small intestinal obstruction [Unknown]
  - Ulna fracture [Unknown]
  - Basilar migraine [Unknown]
  - Cough [Unknown]

NARRATIVE: CASE EVENT DATE: 20110923
